FAERS Safety Report 23480652 (Version 1)
Quarter: 2024Q1

REPORT INFORMATION
  Report Type: Report from Study
  Country: CA (occurrence: CA)
  Receive Date: 20240205
  Receipt Date: 20240205
  Transmission Date: 20240410
  Serious: Yes (Hospitalization)
  Sender: FDA-Public Use
  Company Number: None

PATIENT
  Age: 47 Year
  Sex: Female

DRUGS (10)
  1. METHOTREXATE [Suspect]
     Active Substance: METHOTREXATE
     Indication: Product used for unknown indication
     Route: 058
  2. ACTEMRA [Suspect]
     Active Substance: TOCILIZUMAB
     Indication: Rheumatoid arthritis
     Dosage: 1 EVERY ONE WEEK (-215)
     Route: 058
  3. ESCITALOPRAM [Concomitant]
     Active Substance: ESCITALOPRAM OXALATE
  4. FOLIC ACID [Concomitant]
     Active Substance: FOLIC ACID
  5. HUMALOG [Concomitant]
     Active Substance: INSULIN LISPRO
  6. LEFLUNOMIDE [Concomitant]
     Active Substance: LEFLUNOMIDE
  7. NIFEDIPINE [Concomitant]
     Active Substance: NIFEDIPINE
  8. PANTOPRAZOLE [Concomitant]
     Active Substance: PANTOPRAZOLE
  9. INSULIN DEGLUDEC [Concomitant]
     Active Substance: INSULIN DEGLUDEC
  10. ACTEMRA [Suspect]
     Active Substance: TOCILIZUMAB
     Indication: Rheumatoid arthritis
     Dosage: 1 EVERY ONE WEEK
     Route: 058

REACTIONS (4)
  - Cerebral haemorrhage [Unknown]
  - Fall [Unknown]
  - Migraine [Unknown]
  - Post procedural infection [Unknown]
